FAERS Safety Report 6292407-5 (Version None)
Quarter: 2009Q3

REPORT INFORMATION
  Report Type: 
  Country: None (occurrence: None)
  Receive Date: 20090731
  Receipt Date: 20090723
  Transmission Date: 20100115
  Serious: Yes (Hospitalization, Other)
  Sender: FDA-Public Use
  Company Number: PHEH2009US08115

PATIENT
  Sex: Female

DRUGS (2)
  1. EXJADE [Suspect]
     Indication: ACUTE MYELOID LEUKAEMIA
     Dosage: 750 MG, QD
     Route: 048
  2. EXJADE [Suspect]
     Indication: SERUM FERRITIN INCREASED

REACTIONS (2)
  - GASTROINTESTINAL TOXICITY [None]
  - STEM CELL TRANSPLANT [None]
